FAERS Safety Report 9366675 (Version 1)
Quarter: 2013Q2

REPORT INFORMATION
  Report Type: Spontaneous
  Country: FR (occurrence: FR)
  Receive Date: 20130625
  Receipt Date: 20130625
  Transmission Date: 20140414
  Serious: Yes (Hospitalization, Other)
  Sender: FDA-Public Use
  Company Number: FR-TEVA-415041ISR

PATIENT
  Age: 89 Year
  Sex: Male

DRUGS (6)
  1. FUROSEMIDE TEVA 40 MG, COMPRIME SECABLE [Suspect]
     Indication: CARDIAC FAILURE
     Dosage: 80 MILLIGRAM DAILY; SCORED TABLET. 1 TABLET IN THE MORNING AND 1 TABLET IN THE NOON
     Route: 048
     Dates: start: 201210, end: 20130610
  2. LASILIX RETARD 60 MG [Concomitant]
  3. SYMBICORT [Concomitant]
  4. SPIRIVA [Concomitant]
  5. COUMADINE [Concomitant]
  6. APROVEL [Concomitant]

REACTIONS (8)
  - Cerebrovascular accident [Unknown]
  - Fall [Unknown]
  - Skeletal injury [Unknown]
  - Gait disturbance [Unknown]
  - Gait disturbance [Unknown]
  - Malaise [Not Recovered/Not Resolved]
  - Bronchitis [Unknown]
  - Lung infection [Unknown]
